FAERS Safety Report 25570364 (Version 2)
Quarter: 2025Q3

REPORT INFORMATION
  Report Type: Spontaneous
  Country: JP (occurrence: JP)
  Receive Date: 20250717
  Receipt Date: 20250728
  Transmission Date: 20251021
  Serious: Yes (Hospitalization)
  Sender: NOVARTIS
  Company Number: JP-002147023-NVSJ2025JP007361

PATIENT
  Sex: Female

DRUGS (4)
  1. FABHALTA [Suspect]
     Active Substance: IPTACOPAN HYDROCHLORIDE
     Indication: Paroxysmal nocturnal haemoglobinuria
     Dosage: 200 MG, BID
     Route: 048
     Dates: start: 20250619, end: 20250710
  2. CYCLOSPORINE [Suspect]
     Active Substance: CYCLOSPORINE
     Indication: Product used for unknown indication
     Route: 065
  3. METHENOLONE [Concomitant]
     Active Substance: METHENOLONE
     Indication: Renal disorder
     Route: 065
  4. DAPRODUSTAT [Concomitant]
     Active Substance: DAPRODUSTAT
     Indication: Renal disorder
     Route: 065

REACTIONS (5)
  - Renal disorder [Recovered/Resolved]
  - Concomitant disease aggravated [Recovered/Resolved]
  - Cylindruria [Not Recovered/Not Resolved]
  - Liver disorder [Recovered/Resolved]
  - Therapeutic product effect incomplete [Not Recovered/Not Resolved]

NARRATIVE: CASE EVENT DATE: 20250710
